FAERS Safety Report 12501987 (Version 1)
Quarter: 2016Q2

REPORT INFORMATION
  Report Type: Spontaneous
  Country: US (occurrence: US)
  Receive Date: 20160627
  Receipt Date: 20160627
  Transmission Date: 20160815
  Serious: Yes (Death, Hospitalization, Other)
  Sender: FDA-Public Use
  Company Number: US-BRISTOL-MYERS SQUIBB COMPANY-BMS-2016-051969

PATIENT
  Sex: Male
  Weight: 90.7 kg

DRUGS (3)
  1. OPDIVO [Suspect]
     Active Substance: NIVOLUMAB
     Dosage: UNK, EVERY 3 WEEKS
     Route: 065
     Dates: start: 20160219
  2. OPDIVO [Suspect]
     Active Substance: NIVOLUMAB
     Dosage: UNK, EVERY 3 WEEKS
     Route: 065
     Dates: start: 20160304
  3. OPDIVO [Suspect]
     Active Substance: NIVOLUMAB
     Indication: LUNG NEOPLASM MALIGNANT
     Dosage: UNK UNK, EVERY 3 WEEKS
     Route: 065
     Dates: start: 20160205

REACTIONS (1)
  - Myocardial infarction [Fatal]
